FAERS Safety Report 21139604 (Version 2)
Quarter: 2022Q3

REPORT INFORMATION
  Report Type: Report from Study
  Country: US (occurrence: US)
  Receive Date: 20220727
  Receipt Date: 20220801
  Transmission Date: 20221027
  Serious: Yes (Death, Life-Threatening, Hospitalization, Other)
  Sender: FDA-Public Use
  Company Number: US-BRISTOL-MYERS SQUIBB COMPANY-2022-077570

PATIENT
  Age: 79 Year
  Sex: Male
  Weight: 76.1 kg

DRUGS (5)
  1. NIVOLUMAB [Suspect]
     Active Substance: NIVOLUMAB
     Indication: Prostate cancer metastatic
     Dosage: Q3WEEK
     Route: 042
     Dates: start: 20210929, end: 20220615
  2. IPILIMUMAB [Suspect]
     Active Substance: IPILIMUMAB
     Indication: Prostate cancer metastatic
     Dosage: Q6WEEKS
     Route: 042
     Dates: start: 20210929, end: 20220615
  3. CARBOPLATIN [Suspect]
     Active Substance: CARBOPLATIN
     Indication: Prostate cancer metastatic
     Dosage: AUC 4, AUC 3, Q3 WEEKS
     Route: 042
     Dates: start: 20210929, end: 20220323
  4. CABAZITAXEL [Suspect]
     Active Substance: CABAZITAXEL
     Indication: Prostate cancer metastatic
     Dosage: Q3WEEK
     Route: 042
     Dates: start: 20210929, end: 20220323
  5. XARELTO [Concomitant]
     Active Substance: RIVAROXABAN
     Indication: Thrombosis
     Route: 048
     Dates: start: 20220415

REACTIONS (3)
  - Haemorrhage intracranial [Fatal]
  - Coagulopathy [Fatal]
  - Shock [Fatal]

NARRATIVE: CASE EVENT DATE: 20220718
